FAERS Safety Report 23602684 (Version 5)
Quarter: 2024Q3

REPORT INFORMATION
  Report Type: Spontaneous
  Country: US (occurrence: US)
  Receive Date: 20240306
  Receipt Date: 20240910
  Transmission Date: 20241017
  Serious: Yes (Other)
  Sender: BRISTOL MYERS SQUIBB
  Company Number: US-BRISTOL-MYERS SQUIBB COMPANY-2024-032688

PATIENT
  Age: 68 Year
  Sex: Female

DRUGS (1)
  1. REVLIMID [Suspect]
     Active Substance: LENALIDOMIDE
     Indication: Plasma cell myeloma
     Dosage: QD FOR 21 DAYS ON 7 DAYS OFF
     Route: 048

REACTIONS (15)
  - Asthenia [Unknown]
  - Nasopharyngitis [Unknown]
  - Gait disturbance [Unknown]
  - Arthralgia [Unknown]
  - Neck pain [Unknown]
  - Myalgia [Unknown]
  - Blood stem cell transplant failure [Unknown]
  - Rash [Unknown]
  - Constipation [Unknown]
  - Cough [Unknown]
  - Fatigue [Unknown]
  - Dyspnoea [Unknown]
  - Rotavirus infection [Unknown]
  - Chest pain [Recovered/Resolved]
  - Somnolence [Unknown]
